FAERS Safety Report 5772856-1 (Version None)
Quarter: 2008Q2

REPORT INFORMATION
  Report Type: 
  Country: None (occurrence: None)
  Receive Date: 20080613
  Receipt Date: 20080603
  Transmission Date: 20081010
  Serious: Yes (Other)
  Sender: FDA-Public Use
  Company Number: NL-PFIZER INC-2008040235

PATIENT
  Sex: Female

DRUGS (4)
  1. XALATAN [Suspect]
     Indication: INTRAOCULAR PRESSURE INCREASED
     Route: 047
  2. COSOPT [Concomitant]
     Route: 047
  3. OMEPRAZOLE [Concomitant]
     Route: 048
  4. CALCIUM [Concomitant]
     Route: 048

REACTIONS (4)
  - INTRAOCULAR PRESSURE INCREASED [None]
  - MEDICATION ERROR [None]
  - PHOTOSENSITIVITY REACTION [None]
  - VISUAL FIELD DEFECT [None]
